FAERS Safety Report 7453310 (Version 14)
Quarter: 2012Q4

REPORT INFORMATION
  Report Type: 
  Country: US (occurrence: US)
  Receive Date: 20100705
  Receipt Date: 20121112
  Transmission Date: 20130627
  Serious: Yes (Other)
  Sender: FDA-Public Use
  Company Number: PHEH2010US03488

PATIENT
  Sex: Female

DRUGS (19)
  1. AREDIA [Suspect]
     Indication: MULTIPLE MYELOMA
     Dosage: 60 mg, QMO
     Dates: start: 20050303, end: 20060323
  2. PAMIDRONATE DISODIUM [Suspect]
  3. RANITIDINE [Concomitant]
  4. PANTOPRAZOLE [Concomitant]
  5. CLARITHROMYCIN [Concomitant]
  6. AMOXICILLIN [Concomitant]
  7. PEPCID [Concomitant]
  8. MORPHINE [Concomitant]
  9. TYLENOL [Concomitant]
  10. ZOCOR [Concomitant]
     Dates: start: 20100413
  11. LISINOPRIL [Concomitant]
  12. OMEPRAZOLE [Concomitant]
  13. LORTAB [Concomitant]
  14. OMEGA [Concomitant]
  15. AUGMENTIN [Concomitant]
  16. FERROUS SULPHATE [Concomitant]
  17. NEXIUM [Concomitant]
  18. IMODIUM [Concomitant]
  19. DYAZIDE [Concomitant]

REACTIONS (71)
  - Osteonecrosis of jaw [Recovering/Resolving]
  - Disability [Unknown]
  - Pain [Unknown]
  - Anxiety [Unknown]
  - Abscess jaw [Unknown]
  - Swelling [Unknown]
  - Impaired healing [Unknown]
  - Osteitis [Unknown]
  - Cellulitis [Unknown]
  - Injury [Unknown]
  - General physical health deterioration [Unknown]
  - Anhedonia [Unknown]
  - Peptic ulcer [Unknown]
  - Haematemesis [Unknown]
  - Gastritis [Unknown]
  - Dyspepsia [Unknown]
  - Upper gastrointestinal haemorrhage [Unknown]
  - Hiatus hernia [Unknown]
  - Essential hypertension [Unknown]
  - Diverticulum [Unknown]
  - Gastrooesophageal reflux disease [Unknown]
  - Osteoporosis [Unknown]
  - Plasma cell myeloma [Unknown]
  - Hypercholesterolaemia [Unknown]
  - Osteoarthritis [Unknown]
  - Cataract [Unknown]
  - Dysphagia [Unknown]
  - Anaemia [Unknown]
  - Oesophageal stenosis [Unknown]
  - Urinary tract infection [Unknown]
  - Cholecystitis acute [Unknown]
  - Aortic arteriosclerosis [Unknown]
  - Perihepatic abscess [Unknown]
  - Pharyngeal inflammation [Unknown]
  - Renal failure chronic [Unknown]
  - Arthralgia [Unknown]
  - Arthritis [Unknown]
  - Dyspnoea [Unknown]
  - Helicobacter infection [Unknown]
  - Constipation [Unknown]
  - Back pain [Unknown]
  - Abdominal pain upper [Unknown]
  - Nasal congestion [Unknown]
  - Muscular weakness [Unknown]
  - Osteopenia [Unknown]
  - Paraproteinaemia [Unknown]
  - Vomiting [Unknown]
  - Gangrene [Unknown]
  - Gastroenteritis [Unknown]
  - Oedema [Unknown]
  - Spinal osteoarthritis [Unknown]
  - Intervertebral disc degeneration [Unknown]
  - Peripheral sensory neuropathy [Unknown]
  - Hypoaesthesia oral [Unknown]
  - Mastication disorder [Unknown]
  - Oral disorder [Unknown]
  - Lymphadenopathy [Unknown]
  - Bone fragmentation [Unknown]
  - Discomfort [Unknown]
  - Gingival bleeding [Unknown]
  - Neuropathy peripheral [Unknown]
  - Thrombocytosis [Unknown]
  - Normochromic normocytic anaemia [Unknown]
  - Gastric ulcer [Unknown]
  - Rhinitis allergic [Unknown]
  - Renal impairment [Unknown]
  - Microcytic anaemia [Unknown]
  - Iron deficiency [Unknown]
  - Visual impairment [Unknown]
  - Hypercalcaemia [Unknown]
  - Nocturia [Unknown]
